FAERS Safety Report 5214204-1 (Version None)
Quarter: 2007Q1

REPORT INFORMATION
  Report Type: 
  Country: None (occurrence: None)
  Receive Date: 20070122
  Receipt Date: 20060206
  Transmission Date: 20070707
  Serious: No
  Sender: FDA-Public Use
  Company Number: US-BAXTER-2005BH002903

PATIENT
  Age: 4 Year
  Sex: Male

DRUGS (3)
  1. FORANE [Suspect]
     Indication: MAINTENANCE OF ANAESTHESIA
     Dosage: DOSE UNIT:UNKNOWN
     Route: 065
  2. SEVOFLURANE [Suspect]
     Indication: NEUROMUSCULAR BLOCKADE
     Dosage: DOSE UNIT:UNKNOWN
     Route: 065
  3. PANCURONIUM [Concomitant]

REACTIONS (5)
  - BRADYCARDIA [None]
  - CARDIAC ARREST [None]
  - HYPERKALAEMIA [None]
  - VENTRICULAR FIBRILLATION [None]
  - VENTRICULAR TACHYCARDIA [None]
